FAERS Safety Report 18863919 (Version 1)
Quarter: 2021Q1

REPORT INFORMATION
  Report Type: Spontaneous
  Country: FR (occurrence: FR)
  Receive Date: 20210208
  Receipt Date: 20210208
  Transmission Date: 20210420
  Serious: Yes (Hospitalization)
  Sender: FDA-Public Use
  Company Number: FR-MYLANLABS-2021M1008034

PATIENT
  Age: 29 Year
  Sex: Male

DRUGS (6)
  1. CLOZAPINE. [Suspect]
     Active Substance: CLOZAPINE
     Dosage: 600 MILLIGRAM, BID HE RECEIVED A DAILY DOSE OF 600 MG INSTEAD OF THE..
     Route: 065
     Dates: start: 20181019
  2. DIAZEPAM. [Concomitant]
     Active Substance: DIAZEPAM
     Indication: SCHIZOPHRENIA
     Dosage: 10 MILLIGRAM, QD EVERY 28 DAYS
     Route: 065
     Dates: start: 201810
  3. PALIPERIDONE PALMITATE [Concomitant]
     Active Substance: PALIPERIDONE PALMITATE
     Indication: SCHIZOPHRENIA
     Dosage: 100 MILLIGRAM, QD EVERY 28 DAYS
     Route: 065
     Dates: start: 201810
  4. CLOZAPINE. [Suspect]
     Active Substance: CLOZAPINE
     Indication: SCHIZOPHRENIA
     Dosage: 150 MILLIGRAM, BID
     Route: 065
     Dates: start: 201810
  5. ALIMEMAZINE [Concomitant]
     Active Substance: TRIMEPRAZINE
     Indication: SCHIZOPHRENIA
     Dosage: 40 MILLIGRAM, QD EVERY 28 DAYS
     Route: 065
     Dates: start: 201810
  6. HYDROXYZINE [Concomitant]
     Active Substance: HYDROXYZINE HYDROCHLORIDE
     Indication: SCHIZOPHRENIA
     Dosage: 175 MILLIGRAM, QD EVERY 28 DAYS
     Route: 065
     Dates: start: 201810

REACTIONS (2)
  - Product dispensing error [Recovered/Resolved]
  - Eosinophilia [Recovered/Resolved]

NARRATIVE: CASE EVENT DATE: 201811
